FAERS Safety Report 7041762-7 (Version None)
Quarter: 2010Q4

REPORT INFORMATION
  Report Type: 
  Country: None (occurrence: None)
  Receive Date: 20101013
  Receipt Date: 20100726
  Transmission Date: 20110411
  Serious: No
  Sender: FDA-Public Use
  Company Number: US-ASTRAZENECA-2010SE34830

PATIENT
  Sex: Female

DRUGS (3)
  1. SYMBICORT [Suspect]
     Indication: ASTHMA
     Route: 055
  2. RHINOCORT [Suspect]
     Route: 045
  3. NEXIUM [Suspect]
     Route: 048

REACTIONS (2)
  - COCCIDIOIDOMYCOSIS [None]
  - FUNGAL INFECTION [None]
